FAERS Safety Report 24375178 (Version 1)
Quarter: 2024Q3

REPORT INFORMATION
  Report Type: Report from Study
  Country: US (occurrence: US)
  Receive Date: 20240928
  Receipt Date: 20240928
  Transmission Date: 20241016
  Serious: Yes (Other)
  Sender: UCB
  Company Number: US-UCBSA-2024048025

PATIENT
  Age: 22 Year
  Sex: Female
  Weight: 95.238 kg

DRUGS (7)
  1. BIMEKIZUMAB [Suspect]
     Active Substance: BIMEKIZUMAB
     Indication: Hidradenitis
     Dosage: 320 MILLIGRAM, EV 4 WEEKS
     Route: 058
     Dates: start: 20240915
  2. BIMEKIZUMAB [Suspect]
     Active Substance: BIMEKIZUMAB
     Indication: Off label use
  3. PREDNISONE [Concomitant]
     Active Substance: PREDNISONE
     Indication: Hidradenitis
     Dosage: 80 MILLIGRAM, ONCE DAILY (QD)
     Dates: start: 20240916
  4. METRONIDAZOLE [Concomitant]
     Active Substance: METRONIDAZOLE
     Indication: Hidradenitis
     Dosage: MIXED WITH CLINDAMYCIN AND APPLIED TO AFFECTED ARE BID
  5. CLINDAGEL [Concomitant]
     Active Substance: CLINDAMYCIN PHOSPHATE
     Indication: Hidradenitis
     Dosage: MIXED WITH CLINDAMYCIN AND APPLIED TO AFFECTED ARE BID
  6. COSENTYX [Concomitant]
     Active Substance: SECUKINUMAB
     Indication: Hidradenitis
     Dosage: 300 MILLIGRAM, EV 2 WEEKS(QOW)
     Route: 058
     Dates: start: 202302
  7. DOXYCYCLINE [Concomitant]
     Active Substance: DOXYCYCLINE\DOXYCYCLINE HYCLATE
     Indication: Hidradenitis
     Dosage: 100 MILLIGRAM, 2X/DAY (BID)
     Route: 048
     Dates: start: 20240915

REACTIONS (9)
  - Breast abscess [Unknown]
  - Abdominal abscess [Unknown]
  - Hidradenitis [Unknown]
  - Abscess drainage [Unknown]
  - Skin plaque [Unknown]
  - Eczema [Unknown]
  - Nodule [Unknown]
  - Scar [Unknown]
  - Off label use [Unknown]

NARRATIVE: CASE EVENT DATE: 20240901
